FAERS Safety Report 25639544 (Version 1)
Quarter: 2025Q3

REPORT INFORMATION
  Report Type: Report from Study
  Country: US (occurrence: US)
  Receive Date: 20250804
  Receipt Date: 20250804
  Transmission Date: 20251021
  Serious: Yes (Other)
  Sender: ELI LILLY AND COMPANY
  Company Number: US-ELI_LILLY_AND_COMPANY-US202507022261

PATIENT
  Age: 52 Year
  Sex: Male

DRUGS (2)
  1. FORTEO [Suspect]
     Active Substance: TERIPARATIDE
     Indication: Product used for unknown indication
     Route: 065
     Dates: start: 20250619, end: 20250716
  2. FORTEO [Suspect]
     Active Substance: TERIPARATIDE
     Route: 065
     Dates: start: 20250717, end: 20250721

REACTIONS (6)
  - Myoclonic epilepsy [Unknown]
  - Confusional state [Unknown]
  - Musculoskeletal chest pain [Unknown]
  - Dehydration [Unknown]
  - Sleep terror [Unknown]
  - Injection site reaction [Unknown]

NARRATIVE: CASE EVENT DATE: 20250718
